FAERS Safety Report 21796280 (Version 1)
Quarter: 2022Q4

REPORT INFORMATION
  Report Type: Spontaneous
  Country: DE (occurrence: DE)
  Receive Date: 20221229
  Receipt Date: 20221229
  Transmission Date: 20230112
  Serious: Yes (Disabling, Other)
  Sender: FDA-Public Use
  Company Number: DE-MENARINI-DE-MEN-085650

PATIENT
  Sex: Male

DRUGS (3)
  1. RANEXA [Suspect]
     Active Substance: RANOLAZINE
     Indication: Product used for unknown indication
     Dosage: 750 MG RETARD N3
     Route: 065
     Dates: start: 202212, end: 202212
  2. RANEXA [Suspect]
     Active Substance: RANOLAZINE
     Dosage: 750 MG RETARD N3
     Route: 065
     Dates: start: 2018, end: 202212
  3. RANEXA [Suspect]
     Active Substance: RANOLAZINE
     Dosage: 750 MG RETARD N3
     Route: 065
     Dates: start: 202212

REACTIONS (8)
  - Eczema asteatotic [Recovered/Resolved]
  - Hand dermatitis [Recovered/Resolved]
  - Retching [Recovering/Resolving]
  - Gait disturbance [Recovering/Resolving]
  - Tinnitus [Recovering/Resolving]
  - Dizziness [Recovering/Resolving]
  - Nausea [Recovering/Resolving]
  - Constipation [Recovering/Resolving]

NARRATIVE: CASE EVENT DATE: 20221201
